FAERS Safety Report 9156940 (Version 1)
Quarter: 2013Q1

REPORT INFORMATION
  Report Type: Spontaneous
  Country: US (occurrence: None)
  Receive Date: 20130212
  Receipt Date: 20130212
  Transmission Date: 20140127
  Serious: Yes (Other)
  Sender: FDA-Public Use
  Company Number: KV201300012

PATIENT
  Age: 55 Year
  Sex: Female

DRUGS (3)
  1. EVAMIST [Suspect]
     Route: 062
     Dates: start: 201110
  2. EVAMIST [Suspect]
     Route: 062
     Dates: start: 201110
  3. PROGESTERONE (PROGESTERONE) [Concomitant]

REACTIONS (3)
  - Cervix adenomatous polyp [None]
  - Vaginal haemorrhage [None]
  - Off label use [None]
